FAERS Safety Report 10367394 (Version 1)
Quarter: 2014Q1

REPORT INFORMATION
  Report Type: Spontaneous
  Country: US (occurrence: None)
  Receive Date: 20140306
  Receipt Date: 20140306
  Transmission Date: 20141002
  Serious: Yes (Life-Threatening)
  Sender: FDA-Public Use
  Company Number: 163-21880-13024162

PATIENT
  Age: 60 Year
  Sex: Female

DRUGS (6)
  1. REVLIMID (LENALIDOMIDE) (CAPSULES) [Suspect]
     Indication: MYELODYSPLASTIC SYNDROME
     Route: 048
     Dates: start: 20130131
  2. COUMADIN (WARFARIN SODIUM) (UNKNOWN) [Concomitant]
  3. LISINOPRIL/HCTZ (PRINZIDE) (UNKNOWN) [Concomitant]
  4. SYNTHROID (LEVOTHYROXINE SODIUM) (UNKNOWN) [Concomitant]
  5. ZOLOFT (SERTRALINE HYDROCHLORIDE) (UNKNOWN) [Concomitant]
  6. ORACEA (DOXYCYCLINE) (UNKNOWN) [Concomitant]

REACTIONS (2)
  - Red blood cell count decreased [None]
  - White blood cell count decreased [None]
